FAERS Safety Report 16933861 (Version 2)
Quarter: 2020Q2

REPORT INFORMATION
  Report Type: Report from Study
  Country: US (occurrence: US)
  Receive Date: 20191018
  Receipt Date: 20200626
  Transmission Date: 20200713
  Serious: Yes (Hospitalization, Other)
  Sender: FDA-Public Use
  Company Number: US-SA-2019SA267487

PATIENT

DRUGS (2)
  1. ALEMTUZUMAB [Suspect]
     Active Substance: ALEMTUZUMAB
     Indication: MULTIPLE SCLEROSIS
     Dosage: 12 MG, QD
     Route: 041
     Dates: start: 20190923, end: 20190925
  2. ALEMTUZUMAB [Suspect]
     Active Substance: ALEMTUZUMAB
     Dosage: 12 MG, QD
     Route: 041
     Dates: start: 20190930, end: 20191001

REACTIONS (10)
  - Headache [Not Recovered/Not Resolved]
  - Inappropriate schedule of product administration [Unknown]
  - Pyrexia [Unknown]
  - Sepsis [Unknown]
  - Fatigue [Unknown]
  - Blood pressure decreased [Unknown]
  - Gastrointestinal pain [Unknown]
  - Decreased immune responsiveness [Unknown]
  - Hyperhidrosis [Unknown]
  - Meningitis listeria [Unknown]

NARRATIVE: CASE EVENT DATE: 2019
